FAERS Safety Report 6077918-X (Version None)
Quarter: 2009Q1

REPORT INFORMATION
  Report Type: 
  Country: None (occurrence: None)
  Receive Date: 20090213
  Receipt Date: 20090206
  Transmission Date: 20090719
  Serious: Yes (Death)
  Sender: FDA-Public Use
  Company Number: IT-ROCHE-613194

PATIENT
  Sex: Male
  Weight: 70 kg

DRUGS (8)
  1. CAPECITABINE [Suspect]
     Dosage: TWICE DAILY X 14 DAYS Q 3 WEEKS PER SYNOPSIS; DATE OF LAST DOSE PRIOR TO SAE GIVEN ON 30 JAN 2009.
     Route: 048
     Dates: start: 20090115, end: 20090130
  2. CAPECITABINE [Suspect]
     Dosage: TWICE DAILY X 14 DAYS Q 3 WEEKS PER SYNOPSIS
     Route: 048
     Dates: start: 20081216
  3. BEVACIZUMAB [Suspect]
     Dosage: DATE OF LAST DOSE PRIOR TO SAE GIVEN ON 15 JANUARY 2009; REPORTED AS INFUSION.
     Route: 042
     Dates: start: 20081216, end: 20090204
  4. OXALIPLATIN [Suspect]
     Dosage: DATE OF LAST DOSE PRIOR TO SAE GIVEN ON 15 JANUARY 2009; REPORTED AS INFUSION.
     Route: 042
     Dates: start: 20081216, end: 20090204
  5. OMEPRAZOLE [Concomitant]
     Dates: start: 20081117
  6. JURNISTA [Concomitant]
     Dates: start: 20081117
  7. SOLDESAM [Concomitant]
     Dates: start: 20081117
  8. NEURONTIN [Concomitant]
     Dates: start: 20081117

REACTIONS (1)
  - DEATH [None]
